FAERS Safety Report 13617152 (Version 1)
Quarter: 2017Q2

REPORT INFORMATION
  Report Type: Spontaneous
  Country: US (occurrence: US)
  Receive Date: 20170606
  Receipt Date: 20170606
  Transmission Date: 20170830
  Serious: No
  Sender: FDA-Public Use
  Company Number: US-SA-2016SA195182

PATIENT
  Age: 77 Year
  Sex: Female

DRUGS (20)
  1. XARELTO [Concomitant]
     Active Substance: RIVAROXABAN
  2. LACTOSE [Concomitant]
     Active Substance: LACTOSE
  3. HYDRALAZINE [Concomitant]
     Active Substance: HYDRALAZINE HYDROCHLORIDE
  4. METAMUCIL [Concomitant]
     Active Substance: PLANTAGO SEED
  5. MIRALAX [Concomitant]
     Active Substance: POLYETHYLENE GLYCOL 3350
  6. ASPIRIN. [Concomitant]
     Active Substance: ASPIRIN
  7. ACIDOPHILUS [Concomitant]
     Active Substance: LACTOBACILLUS ACIDOPHILUS
  8. LANTUS SOLOSTAR [Suspect]
     Active Substance: INSULIN GLARGINE
     Indication: TYPE 2 DIABETES MELLITUS
     Dosage: DOSE:50 UNIT(S)
     Route: 065
  9. LANTUS [Concomitant]
     Active Substance: INSULIN GLARGINE
     Dosage: DOSE:50 UNIT(S)
  10. ALPRAZOLAM. [Concomitant]
     Active Substance: ALPRAZOLAM
  11. METOPROLOL. [Concomitant]
     Active Substance: METOPROLOL
  12. PEPCID [Concomitant]
     Active Substance: FAMOTIDINE
  13. SOLOSTAR [Concomitant]
     Active Substance: DEVICE
     Indication: TYPE 2 DIABETES MELLITUS
  14. DILTIAZEM. [Concomitant]
     Active Substance: DILTIAZEM
  15. LASIX [Concomitant]
     Active Substance: FUROSEMIDE
  16. ZETIA [Concomitant]
     Active Substance: EZETIMIBE
  17. POTASSIUM CHLORIDE. [Concomitant]
     Active Substance: POTASSIUM CHLORIDE
  18. DOCUSATE SODIUM. [Concomitant]
     Active Substance: DOCUSATE SODIUM
     Indication: FAECES SOFT
  19. VITAMIN D [Concomitant]
     Active Substance: CHOLECALCIFEROL
  20. CARISOPRODOL. [Concomitant]
     Active Substance: CARISOPRODOL

REACTIONS (3)
  - Cataract [Unknown]
  - Walking aid user [Unknown]
  - Visual impairment [Unknown]
